FAERS Safety Report 20269397 (Version 1)
Quarter: 2022Q1

REPORT INFORMATION
  Report Type: Spontaneous
  Country: US (occurrence: US)
  Receive Date: 20220101
  Receipt Date: 20220101
  Transmission Date: 20220423
  Serious: Yes (Life-Threatening, Other)
  Sender: FDA-Public Use
  Company Number: US-AMGEN-USASP2021207449

PATIENT

DRUGS (6)
  1. TALIMOGENE LAHERPAREPVEC [Suspect]
     Active Substance: TALIMOGENE LAHERPAREPVEC
     Indication: Sarcoma
     Dosage: UNK
     Route: 065
  2. TALIMOGENE LAHERPAREPVEC [Suspect]
     Active Substance: TALIMOGENE LAHERPAREPVEC
     Indication: Off label use
  3. NIVOLUMAB [Suspect]
     Active Substance: NIVOLUMAB
     Indication: Sarcoma
     Dosage: UNK
     Route: 065
  4. BEMPEGALDESLEUKIN [Suspect]
     Active Substance: BEMPEGALDESLEUKIN
     Indication: Sarcoma
     Dosage: UNK
     Route: 065
  5. PEMBROLIZUMAB [Suspect]
     Active Substance: PEMBROLIZUMAB
     Indication: Sarcoma
     Dosage: UNK
     Route: 065
  6. EPACADOSTAT [Suspect]
     Active Substance: EPACADOSTAT
     Indication: Sarcoma
     Dosage: UNK
     Route: 065

REACTIONS (9)
  - Immune-mediated adverse reaction [Unknown]
  - Sarcoma [Unknown]
  - Hypothyroidism [Unknown]
  - Pruritus [Unknown]
  - Off label use [Unknown]
  - Myalgia [Unknown]
  - Rash [Unknown]
  - Arthralgia [Unknown]
  - Therapy partial responder [Unknown]
